FAERS Safety Report 14815347 (Version 1)
Quarter: 2018Q2

REPORT INFORMATION
  Report Type: Spontaneous
  Country: US (occurrence: US)
  Receive Date: 20180417
  Receipt Date: 20180417
  Transmission Date: 20180711
  Serious: Yes (Other)
  Sender: FDA-Public Use
  Company Number: None

PATIENT
  Age: 64 Year
  Sex: Female
  Weight: 85.5 kg

DRUGS (1)
  1. XIIDRA [Suspect]
     Active Substance: LIFITEGRAST

REACTIONS (4)
  - Hypersensitivity [None]
  - Dry eye [None]
  - Eye irritation [None]
  - Eye swelling [None]

NARRATIVE: CASE EVENT DATE: 20180416
